FAERS Safety Report 9170988 (Version 2)
Quarter: 2013Q3

REPORT INFORMATION
  Report Type: Spontaneous
  Country: JP (occurrence: JP)
  Receive Date: 20130319
  Receipt Date: 20130822
  Transmission Date: 20140515
  Serious: Yes (Other)
  Sender: FDA-Public Use
  Company Number: JP-ASTELLAS-2013JP003960

PATIENT
  Age: 66 Year
  Sex: Male

DRUGS (30)
  1. PROGRAF [Suspect]
     Indication: PROPHYLAXIS AGAINST GRAFT VERSUS HOST DISEASE
     Dosage: UNK
     Route: 065
     Dates: start: 2012
  2. PROGRAF [Suspect]
     Route: 065
  3. MYCOPHENOLATE MOFETIL [Concomitant]
     Indication: PROPHYLAXIS AGAINST GRAFT VERSUS HOST DISEASE
     Dosage: UNK
     Route: 065
     Dates: start: 2012
  4. MYCOPHENOLATE MOFETIL [Concomitant]
     Route: 065
  5. FLUDARABINE [Concomitant]
     Indication: PREMEDICATION
     Dosage: 125 MG/M2, UNKNOWN/D
     Route: 065
     Dates: start: 201204, end: 201204
  6. MELPHALAN [Concomitant]
     Indication: PREMEDICATION
     Dosage: 80 MG/M2, UNKNOWN/D
     Route: 065
     Dates: start: 201204, end: 201204
  7. CYCLOPHOSPHAMIDE [Concomitant]
     Indication: CHEMOTHERAPY
     Dosage: UNK
     Route: 065
     Dates: start: 2012, end: 2012
  8. CYCLOPHOSPHAMIDE [Concomitant]
     Indication: CHEMOTHERAPY
     Dosage: 400 MG/M2, UNKNOWN/D
     Route: 065
     Dates: start: 2012, end: 2012
  9. CYCLOPHOSPHAMIDE [Concomitant]
     Dosage: 400 MG/M2, UNKNOWN/D
     Route: 065
     Dates: start: 2012, end: 2012
  10. HYDROXYDAUNORUBICIN [Concomitant]
     Indication: CHEMOTHERAPY
     Dosage: UNK
     Route: 065
     Dates: start: 2012, end: 2012
  11. HYDROXYDAUNORUBICIN [Concomitant]
     Indication: CHEMOTHERAPY
     Dosage: 400 MG/M2, UNKNOWN/D
     Route: 065
     Dates: start: 2012, end: 2012
  12. HYDROXYDAUNORUBICIN [Concomitant]
     Dosage: 400 MG/M2, UNKNOWN/D
     Route: 065
     Dates: start: 2012, end: 2012
  13. VINCRISTINE [Concomitant]
     Indication: CHEMOTHERAPY
     Dosage: UNK
     Route: 065
     Dates: start: 2012, end: 2012
  14. VINCRISTINE [Concomitant]
     Indication: CHEMOTHERAPY
     Dosage: 1 MG/M2, UNKNOWN/D
     Route: 065
     Dates: start: 2012, end: 2012
  15. VINCRISTINE [Concomitant]
     Dosage: 1 MG/M2, UNKNOWN/D
     Route: 065
     Dates: start: 2012, end: 2012
  16. PREDNISOLONE [Concomitant]
     Indication: CHEMOTHERAPY
     Dosage: UNK
     Route: 065
     Dates: start: 2012, end: 2012
  17. PREDNISOLONE [Concomitant]
     Indication: CHEMOTHERAPY
     Dosage: 40 MG/M2, UNKNOWN/D
     Route: 065
     Dates: start: 2012, end: 2012
  18. PREDNISOLONE [Concomitant]
     Dosage: 40 MG/M2, UNKNOWN/D
     Route: 065
     Dates: start: 2012, end: 2012
  19. PREDNISOLONE [Concomitant]
     Dosage: 40 MG/M2, UNKNOWN/D
     Route: 065
     Dates: start: 2012, end: 2012
  20. PREDNISOLONE [Concomitant]
     Dosage: 40 MG/M2, UNKNOWN/D
     Route: 065
     Dates: start: 2012, end: 2012
  21. PREDNISOLONE [Concomitant]
     Dosage: UNK
     Route: 065
  22. ETOPOSIDE [Concomitant]
     Indication: CHEMOTHERAPY
     Dosage: 35 MG/M2, UNKNOWN/D
     Route: 065
     Dates: start: 2012, end: 2012
  23. ETOPOSIDE [Concomitant]
     Dosage: 35 MG/M2, UNKNOWN/D
     Route: 065
     Dates: start: 2012, end: 2012
  24. ETOPOSIDE [Concomitant]
     Dosage: 100 MG/M2, UNKNOWN/D
     Route: 065
     Dates: start: 2012
  25. MITOXANTRONE [Concomitant]
     Indication: CHEMOTHERAPY
     Dosage: 7 MG/M2, UNKNOWN/D
     Route: 065
     Dates: start: 2012, end: 2012
  26. MITOXANTRONE [Concomitant]
     Dosage: 7 MG/M2, UNKNOWN/D
     Route: 065
     Dates: start: 2012, end: 2012
  27. RANIMUSTINE [Concomitant]
     Indication: CHEMOTHERAPY
     Dosage: 50 MG/M2, UNKNOWN/D
     Route: 065
     Dates: start: 2012, end: 2012
  28. RANIMUSTINE [Concomitant]
     Dosage: 50 MG/M2, UNKNOWN/D
     Route: 065
     Dates: start: 2012, end: 2012
  29. VINDESINE [Concomitant]
     Indication: CHEMOTHERAPY
     Dosage: 2 MG/M2, UNKNOWN/D
     Route: 065
     Dates: start: 2012, end: 2012
  30. VINDESINE [Concomitant]
     Dosage: 2 MG/M2, UNKNOWN/D
     Route: 065
     Dates: start: 2012, end: 2012

REACTIONS (2)
  - Drug ineffective [Unknown]
  - Graft versus host disease [Unknown]
